FAERS Safety Report 14371388 (Version 1)
Quarter: 2018Q1

REPORT INFORMATION
  Report Type: Report from Study
  Country: MX (occurrence: MX)
  Receive Date: 20180110
  Receipt Date: 20180110
  Transmission Date: 20180509
  Serious: Yes (Other)
  Sender: FDA-Public Use
  Company Number: PHHY2018MX001838

PATIENT
  Sex: Female

DRUGS (1)
  1. EXFORGE HCT [Suspect]
     Active Substance: AMLODIPINE BESYLATE\HYDROCHLOROTHIAZIDE\VALSARTAN
     Indication: CARDIAC DISORDER
     Dosage: (AMLODIPINE 5/HYDROCHLOROTHIAZIDE 12.5/VALSARTAN 160MG)
     Route: 065

REACTIONS (2)
  - Product use in unapproved indication [Unknown]
  - Embolism [Unknown]
